FAERS Safety Report 16356741 (Version 1)
Quarter: 2019Q2

REPORT INFORMATION
  Report Type: Spontaneous
  Country: IT (occurrence: IT)
  Receive Date: 20190527
  Receipt Date: 20190527
  Transmission Date: 20190711
  Serious: Yes (Other)
  Sender: FDA-Public Use
  Company Number: IT-ACCORD-129358

PATIENT
  Age: 8 Year
  Sex: Male
  Weight: 49 kg

DRUGS (1)
  1. OXYBUTYNIN/OXYBUTYNIN HYDROCHLORIDE [Suspect]
     Active Substance: OXYBUTYNIN
     Indication: ENURESIS
     Route: 048
     Dates: start: 20190101, end: 20190131

REACTIONS (5)
  - Suicidal ideation [Recovered/Resolved]
  - Persecutory delusion [Recovered/Resolved]
  - Psychomotor hyperactivity [Recovered/Resolved]
  - Aggression [Recovered/Resolved]
  - Depression [Recovered/Resolved]

NARRATIVE: CASE EVENT DATE: 20190107
